FAERS Safety Report 8047180-7 (Version None)
Quarter: 2012Q1

REPORT INFORMATION
  Report Type: 
  Country: None (occurrence: None)
  Receive Date: 20120116
  Receipt Date: 20120106
  Transmission Date: 20120608
  Serious: Yes (Hospitalization, Other)
  Sender: FDA-Public Use
  Company Number: PHHY2011JP100274

PATIENT
  Age: 43 Year
  Sex: Female
  Weight: 54 kg

DRUGS (5)
  1. CYCLOPHOSPHAMIDE [Concomitant]
     Indication: BREAST CANCER
     Dosage: 750 MG, UNK
  2. TRASTUZUMAB [Suspect]
     Indication: BREAST CANCER
     Dosage: 8 MG/KG, UNK
  3. FLUOROURACIL [Concomitant]
     Indication: BREAST CANCER
     Dosage: 750 MG, UNK
  4. EPIRUBICIN [Suspect]
     Indication: BREAST CANCER
     Dosage: 150MG (TOTAL DOSE 750MG)
  5. TRASTUZUMAB [Suspect]
     Dosage: 300MG UNK

REACTIONS (12)
  - VENTRICULAR DYSFUNCTION [None]
  - CARDIAC FAILURE ACUTE [None]
  - PULMONARY CONGESTION [None]
  - DYSPNOEA [None]
  - GENERAL PHYSICAL HEALTH DETERIORATION [None]
  - HEART RATE INCREASED [None]
  - ATRIOVENTRICULAR BLOCK FIRST DEGREE [None]
  - EJECTION FRACTION DECREASED [None]
  - SINUS TACHYCARDIA [None]
  - MITRAL VALVE INCOMPETENCE [None]
  - ORTHOPNOEA [None]
  - OEDEMA PERIPHERAL [None]
